FAERS Safety Report 8956786 (Version 1)
Quarter: 2012Q4

REPORT INFORMATION
  Report Type: 
  Country: US (occurrence: US)
  Receive Date: 20121211
  Receipt Date: 20121211
  Transmission Date: 20130627
  Serious: Yes (Death)
  Sender: FDA-Public Use
  Company Number: US-PFIZER INC-2012309824

PATIENT
  Age: 58 Year
  Sex: Male

DRUGS (2)
  1. RAPAMUNE [Suspect]
     Indication: BONE MARROW DISORDER
     Dosage: 0.5 mg, daily
     Dates: start: 20100210
  2. VFEND [Suspect]
     Indication: FUNGAL INFECTION
     Dosage: 200 mg, 2x/day
     Dates: start: 20100210

REACTIONS (3)
  - Respiratory failure [Fatal]
  - Lung infection [Fatal]
  - Off label use [Unknown]
